FAERS Safety Report 19829404 (Version 1)
Quarter: 2021Q3

REPORT INFORMATION
  Report Type: Spontaneous
  Country: JP (occurrence: JP)
  Receive Date: 20210914
  Receipt Date: 20210914
  Transmission Date: 20211014
  Serious: Yes (Other)
  Sender: FDA-Public Use
  Company Number: JP-ARBOR PHARMACEUTICALS, LLC-JP-2021ARB001061

PATIENT
  Age: 65 Year
  Sex: Female

DRUGS (1)
  1. REGNITE [Suspect]
     Active Substance: GABAPENTIN ENACARBIL
     Indication: PRODUCT USED FOR UNKNOWN INDICATION
     Dosage: UNK, UNKNOWN FREQ.
     Route: 048
     Dates: end: 20210630

REACTIONS (3)
  - Renal impairment [Unknown]
  - Pyrexia [Not Recovered/Not Resolved]
  - Platelet count increased [Unknown]
